FAERS Safety Report 5071630-1 (Version None)
Quarter: 2006Q3

REPORT INFORMATION
  Report Type: 
  Country: None (occurrence: None)
  Receive Date: 20060804
  Receipt Date: 20060731
  Transmission Date: 20061208
  Serious: Yes (Other)
  Sender: FDA-Public Use
  Company Number: US-MERCK-0608USA00237

PATIENT
  Age: 44 Year
  Sex: Female
  Weight: 73 kg

DRUGS (7)
  1. SINGULAIR [Suspect]
     Indication: HYPERSENSITIVITY
     Route: 048
     Dates: start: 20060720, end: 20060720
  2. SINGULAIR [Suspect]
     Indication: SINUSITIS
     Route: 048
     Dates: start: 20060720, end: 20060720
  3. FLONASE [Concomitant]
     Indication: HYPERSENSITIVITY
     Route: 055
     Dates: start: 20060610
  4. ZYRTEC [Concomitant]
     Indication: SINUSITIS
     Route: 048
     Dates: start: 20060713
  5. ZYRTEC [Concomitant]
     Indication: HYPERSENSITIVITY
     Route: 048
     Dates: start: 20060713
  6. PREDNISONE [Concomitant]
     Indication: SINUSITIS
     Route: 048
     Dates: start: 20060713
  7. PREDNISONE [Concomitant]
     Indication: HYPERSENSITIVITY
     Route: 048
     Dates: start: 20060713

REACTIONS (7)
  - HYPOAESTHESIA [None]
  - HYPOAESTHESIA FACIAL [None]
  - MUSCULOSKELETAL PAIN [None]
  - NECK PAIN [None]
  - OEDEMA PERIPHERAL [None]
  - PAIN IN EXTREMITY [None]
  - TREMOR [None]
